FAERS Safety Report 9929829 (Version 2)
Quarter: 2014Q1

REPORT INFORMATION
  Report Type: Spontaneous
  Country: GB (occurrence: GB)
  Receive Date: 20140227
  Receipt Date: 20140227
  Transmission Date: 20141002
  Serious: Yes (Disabling)
  Sender: FDA-Public Use
  Company Number: GB-B.I. PHARMACEUTICALS,INC./RIDGEFIELD-2014-BI-06938UK

PATIENT
  Age: 72 Year
  Sex: Male
  Weight: 85.5 kg

DRUGS (8)
  1. PRADAXA [Suspect]
     Indication: ATRIAL FIBRILLATION
     Dosage: 300 MG
     Route: 048
     Dates: start: 20131224
  2. PRADAXA [Suspect]
     Dosage: 600 MG
     Route: 048
     Dates: start: 201401
  3. RAMIPRIL [Concomitant]
     Dosage: 10 MG
     Route: 065
     Dates: start: 20130314
  4. SIMVASTATIN [Concomitant]
     Dosage: 40 MG
     Route: 065
     Dates: start: 20131224
  5. BISOPROLOL [Concomitant]
     Dosage: 5 MG
     Route: 065
     Dates: start: 20131009
  6. PARACETAMOL [Concomitant]
     Route: 065
     Dates: start: 20131224
  7. OMEPRAZOLE [Concomitant]
     Dosage: 20 MG
     Route: 065
     Dates: start: 20140127
  8. HYPROMELLOSE 0.3% [Concomitant]
     Route: 065
     Dates: start: 20101007

REACTIONS (4)
  - Ischaemia [Not Recovered/Not Resolved]
  - Appetite disorder [Unknown]
  - Weight decreased [Unknown]
  - Overdose [Unknown]
